FAERS Safety Report 14965966 (Version 2)
Quarter: 2018Q3

REPORT INFORMATION
  Report Type: Spontaneous
  Country: US (occurrence: US)
  Receive Date: 20180603
  Receipt Date: 20180706
  Transmission Date: 20181010
  Serious: Yes (Other)
  Sender: FDA-Public Use
  Company Number: US-ASTRAZENECA-2018SE71777

PATIENT
  Age: 817 Month
  Sex: Female
  Weight: 73.5 kg

DRUGS (23)
  1. FUROSEMIDE. [Concomitant]
     Active Substance: FUROSEMIDE
     Indication: WEIGHT INCREASED
     Dosage: TAKE ONE TABLET BY MOUTH MONDAY, WEDNESDAY, AND FRIDAY
     Route: 048
     Dates: start: 20140505
  2. ACYCLOVIR. [Concomitant]
     Active Substance: ACYCLOVIR
     Indication: HERPES ZOSTER
     Route: 065
     Dates: start: 2012
  3. ATORVASTATIN CALCIUM. [Concomitant]
     Active Substance: ATORVASTATIN CALCIUM
     Dosage: 20 MG TAKE ONE TABLET BY MOUTH
     Route: 048
  4. LOSARTAN POTASSIUM. [Concomitant]
     Active Substance: LOSARTAN POTASSIUM
     Dosage: 25 MG, TAKE 1 TABLET BEDTIME
     Route: 048
  5. METOPROLOL SUCCINATE. [Concomitant]
     Active Substance: METOPROLOL SUCCINATE
     Route: 048
     Dates: start: 20120214
  6. OXYCODONE [Concomitant]
     Active Substance: OXYCODONE
     Dosage: TAKE ONE TABLET BY MOUTH EVERY 6 HOURS AS NEEDED FOR PAIN
     Route: 048
     Dates: start: 20120802
  7. BENADRYL [Concomitant]
     Active Substance: DIPHENHYDRAMINE HYDROCHLORIDE
     Indication: MULTIPLE ALLERGIES
     Dosage: BEFORE 2012
     Route: 065
  8. PRILOSEC OTC [Suspect]
     Active Substance: OMEPRAZOLE MAGNESIUM
     Route: 048
     Dates: start: 20120705, end: 20160623
  9. RANITIDINE. [Concomitant]
     Active Substance: RANITIDINE
     Route: 048
     Dates: start: 20120403
  10. TRAMADOL. [Concomitant]
     Active Substance: TRAMADOL
     Indication: FIBROMYALGIA
     Dosage: TAKE 1 ? 2 TABLETS BY MOUTH EVERY 4 HOURS AS NEEDED FOR PAIN MAX OF BTABS PER DAY
     Route: 048
     Dates: start: 20120214
  11. SULFAMETHOXAZOLE [Concomitant]
     Active Substance: SULFAMETHOXAZOLE
     Indication: INFECTION
     Route: 065
  12. FERROUS SULFATE. [Concomitant]
     Active Substance: FERROUS SULFATE
     Route: 048
  13. GABAPENTIN. [Concomitant]
     Active Substance: GABAPENTIN
     Dosage: 300 MG, TAKE 2 CAPSULES BY MOUTH 3 TIMES DAILY
     Route: 048
     Dates: start: 20120116
  14. PRILOSEC [Suspect]
     Active Substance: OMEPRAZOLE MAGNESIUM
     Indication: GASTROINTESTINAL HAEMORRHAGE
     Route: 048
     Dates: start: 20120705, end: 20160623
  15. PRILOSEC [Suspect]
     Active Substance: OMEPRAZOLE MAGNESIUM
     Indication: GASTROINTESTINAL HAEMORRHAGE
     Route: 048
     Dates: start: 20120705, end: 20150531
  16. OMEPRAZOLE. [Concomitant]
     Active Substance: OMEPRAZOLE
     Route: 048
     Dates: start: 20120721, end: 20160511
  17. FUROSEMIDE. [Concomitant]
     Active Substance: FUROSEMIDE
     Indication: BLOOD PRESSURE MEASUREMENT
     Dosage: TAKE ONE TABLET BY MOUTH MONDAY, WEDNESDAY, AND FRIDAY
     Route: 048
     Dates: start: 20140505
  18. ALBUTEROL. [Concomitant]
     Active Substance: ALBUTEROL
     Dosage: INHALE 1 TO 2 PUFFS EVERY 4 TO 6
     Route: 065
  19. METOPROLOL SUCCINATE. [Concomitant]
     Active Substance: METOPROLOL SUCCINATE
     Route: 048
  20. LOVASTATIN. [Concomitant]
     Active Substance: LOVASTATIN
     Indication: BLOOD CHOLESTEROL
     Route: 048
     Dates: start: 2011
  21. GABAPENTIN. [Concomitant]
     Active Substance: GABAPENTIN
     Dosage: 100 MG,TAKE ONE CAPSULE BY MOUTH TWICE A DAY
     Route: 048
     Dates: start: 20120116
  22. FISH OIL [Concomitant]
     Active Substance: FISH OIL
     Route: 065
     Dates: start: 2012
  23. ETODOLAC. [Concomitant]
     Active Substance: ETODOLAC
     Dosage: TAKE ONE TABLET BY MOUTH TWICE A DAY
     Route: 048
     Dates: start: 20120416

REACTIONS (2)
  - Chronic kidney disease [Not Recovered/Not Resolved]
  - Acute kidney injury [Not Recovered/Not Resolved]

NARRATIVE: CASE EVENT DATE: 201508
